FAERS Safety Report 9961405 (Version 1)
Quarter: 2014Q1

REPORT INFORMATION
  Report Type: Report from Study
  Country: US (occurrence: US)
  Receive Date: 20140305
  Receipt Date: 20140305
  Transmission Date: 20141002
  Serious: Yes (Hospitalization)
  Sender: FDA-Public Use
  Company Number: PHEH2014US003996

PATIENT
  Age: 53 Year
  Sex: Male

DRUGS (1)
  1. MYFORTIC [Suspect]
     Indication: RENAL TRANSPLANT
     Dosage: 3 DF, (2 TABS AM AND 1 TAB PM)
     Route: 048
     Dates: start: 200712

REACTIONS (5)
  - Fall [Unknown]
  - Rotator cuff syndrome [Unknown]
  - Joint injury [Unknown]
  - Facial bones fracture [Unknown]
  - Hypoglycaemia [Unknown]
